FAERS Safety Report 21652405 (Version 1)
Quarter: 2022Q4

REPORT INFORMATION
  Report Type: Report from Study
  Country: CO (occurrence: CO)
  Receive Date: 20221128
  Receipt Date: 20221128
  Transmission Date: 20230113
  Serious: Yes (Other)
  Sender: FDA-Public Use
  Company Number: CO-ABBVIE-4215353

PATIENT
  Age: 69 Year
  Sex: Female
  Weight: 78 kg

DRUGS (4)
  1. SKYRIZI [Suspect]
     Active Substance: RISANKIZUMAB-RZAA
     Indication: Psoriasis
     Route: 058
     Dates: start: 20220914
  2. ETORICOXIB [Concomitant]
     Active Substance: ETORICOXIB
     Indication: Postoperative care
     Route: 048
     Dates: start: 20221122
  3. ACETAMINOPHEN [Concomitant]
     Active Substance: ACETAMINOPHEN
     Indication: Postoperative care
     Route: 048
     Dates: start: 20221122
  4. ENOXAPARIN [Concomitant]
     Active Substance: ENOXAPARIN
     Indication: Postoperative care
     Dosage: 1 INJECTION
     Route: 058
     Dates: start: 20221122

REACTIONS (1)
  - Arthroscopy [Recovering/Resolving]

NARRATIVE: CASE EVENT DATE: 20221122
